FAERS Safety Report 6168884-7 (Version None)
Quarter: 2009Q2

REPORT INFORMATION
  Report Type: 
  Country: None (occurrence: None)
  Receive Date: 20090427
  Receipt Date: 20090424
  Transmission Date: 20091009
  Serious: Yes (Other)
  Sender: FDA-Public Use
  Company Number: US-RB-012461-09

PATIENT
  Age: 31 Year
  Sex: Female

DRUGS (2)
  1. BUPRENORPHINE AND NALOXONE [Suspect]
     Route: 060
     Dates: start: 20090323
  2. XANAX [Concomitant]
     Indication: ANXIETY
     Route: 048

REACTIONS (2)
  - CONVULSION [None]
  - DRUG WITHDRAWAL SYNDROME [None]
